FAERS Safety Report 10078848 (Version 2)
Quarter: 2014Q2

REPORT INFORMATION
  Report Type: Report from Study
  Country: CA (occurrence: CA)
  Receive Date: 20140415
  Receipt Date: 20140424
  Transmission Date: 20141212
  Serious: Yes (Hospitalization)
  Sender: FDA-Public Use
  Company Number: CA-JNJFOC-20140407341

PATIENT
  Age: 0 Year
  Sex: 0

DRUGS (2)
  1. REMICADE [Suspect]
     Indication: CROHN^S DISEASE
     Dosage: MOTHER^S DOSING INFO
     Route: 064
     Dates: start: 2005
  2. REMICADE [Suspect]
     Indication: CROHN^S DISEASE
     Dosage: MOTHER^S DOSING INFO
     Route: 064
     Dates: start: 20080101

REACTIONS (3)
  - Premature baby [Not Recovered/Not Resolved]
  - Foetal exposure during pregnancy [Recovered/Resolved]
  - Exposure during breast feeding [Unknown]
